FAERS Safety Report 6273391-7 (Version None)
Quarter: 2009Q3

REPORT INFORMATION
  Report Type: 
  Country: None (occurrence: None)
  Receive Date: 20090720
  Receipt Date: 20090711
  Transmission Date: 20100115
  Serious: Yes (Other)
  Sender: FDA-Public Use
  Company Number: GB-BAYER-200912704BNE

PATIENT

DRUGS (1)
  1. NEXAVAR [Suspect]
     Indication: RENAL CELL CARCINOMA

REACTIONS (1)
  - ADVERSE DRUG REACTION [None]
